FAERS Safety Report 18249538 (Version 3)
Quarter: 2022Q4

REPORT INFORMATION
  Report Type: Report from Study
  Country: CA (occurrence: CA)
  Receive Date: 20200909
  Receipt Date: 20221216
  Transmission Date: 20230112
  Serious: Yes (Other)
  Sender: FDA-Public Use
  Company Number: CA-JNJFOC-20191012227

PATIENT
  Age: 14 Year
  Sex: Male
  Weight: 70.5 kg

DRUGS (4)
  1. REMICADE [Suspect]
     Active Substance: INFLIXIMAB
     Indication: Crohn^s disease
     Route: 042
     Dates: start: 20171006
  2. REMICADE [Suspect]
     Active Substance: INFLIXIMAB
     Route: 042
     Dates: start: 201908
  3. REMICADE [Suspect]
     Active Substance: INFLIXIMAB
     Route: 042
     Dates: start: 20191114
  4. REMICADE [Suspect]
     Active Substance: INFLIXIMAB
     Dosage: THE PATIENT WAS RECEIVED REMICADE INFUSION ON 13-DEC-2022.
     Route: 042

REACTIONS (7)
  - Anal abscess [Unknown]
  - Crohn^s disease [Recovering/Resolving]
  - Influenza [Unknown]
  - Anal fistula [Unknown]
  - Inappropriate schedule of product administration [Unknown]
  - Off label use [Unknown]
  - Product use issue [Unknown]

NARRATIVE: CASE EVENT DATE: 20171006
